FAERS Safety Report 23193324 (Version 2)
Quarter: 2023Q4

REPORT INFORMATION
  Report Type: Spontaneous
  Country: JP (occurrence: JP)
  Receive Date: 20231116
  Receipt Date: 20231218
  Transmission Date: 20240110
  Serious: Yes (Hospitalization)
  Sender: FDA-Public Use
  Company Number: JP-MSD-M2023-42683

PATIENT
  Age: 72 Year
  Sex: Female

DRUGS (3)
  1. KEYTRUDA [Suspect]
     Active Substance: PEMBROLIZUMAB
     Indication: Renal cell carcinoma stage III
     Dosage: 200 MILLIGRAM, Q3W
     Route: 041
     Dates: start: 20221122
  2. LENVIMA [Suspect]
     Active Substance: LENVATINIB
     Indication: Renal cell carcinoma stage III
     Dosage: 20 MILLIGRAM, QD
     Route: 048
     Dates: start: 20221122
  3. LENVIMA [Suspect]
     Active Substance: LENVATINIB
     Dosage: UNK
     Route: 048
     Dates: start: 2023

REACTIONS (3)
  - Malaise [Recovering/Resolving]
  - Platelet count decreased [Recovering/Resolving]
  - Hypertension [Recovering/Resolving]

NARRATIVE: CASE EVENT DATE: 20221205
